FAERS Safety Report 9681456 (Version 1)
Quarter: 2013Q4

REPORT INFORMATION
  Report Type: Spontaneous
  Country: SE (occurrence: None)
  Receive Date: 20131107
  Receipt Date: 20131107
  Transmission Date: 20140711
  Serious: Yes (Other)
  Sender: FDA-Public Use
  Company Number: SYM-2013-12263

PATIENT
  Age: 26 Year
  Sex: Female

DRUGS (1)
  1. FLAGYL [Suspect]
     Route: 048
     Dates: start: 20121001, end: 20121003

REACTIONS (1)
  - Hallucination [None]
